FAERS Safety Report 4651945-9 (Version None)
Quarter: 2005Q2

REPORT INFORMATION
  Report Type: 
  Country: None (occurrence: None)
  Receive Date: 20050502
  Receipt Date: 20050418
  Transmission Date: 20051028
  Serious: Yes (Hospitalization, Other)
  Sender: FDA-Public Use
  Company Number: HQWYE116419APR05

PATIENT
  Age: 43 Year
  Sex: Female
  Weight: 56.75 kg

DRUGS (21)
  1. EFFEXOR XR [Suspect]
     Indication: FACIAL PAIN
     Dosage: SEE IMAGE
     Route: 048
     Dates: start: 20040501, end: 20040501
  2. EFFEXOR XR [Suspect]
     Indication: MENOPAUSE
     Dosage: SEE IMAGE
     Route: 048
     Dates: start: 20040501, end: 20040501
  3. EFFEXOR XR [Suspect]
     Indication: FACIAL PAIN
     Dosage: SEE IMAGE
     Route: 048
     Dates: start: 20040501, end: 20040501
  4. EFFEXOR XR [Suspect]
     Indication: MENOPAUSE
     Dosage: SEE IMAGE
     Route: 048
     Dates: start: 20040501, end: 20040501
  5. EFFEXOR XR [Suspect]
     Indication: FACIAL PAIN
     Dosage: SEE IMAGE
     Route: 048
     Dates: end: 20040501
  6. EFFEXOR XR [Suspect]
     Indication: MENOPAUSE
     Dosage: SEE IMAGE
     Route: 048
     Dates: end: 20040501
  7. EFFEXOR XR [Suspect]
     Indication: FACIAL PAIN
     Dosage: SEE IMAGE
     Route: 048
     Dates: start: 20040901, end: 20041101
  8. EFFEXOR XR [Suspect]
     Indication: MENOPAUSE
     Dosage: SEE IMAGE
     Route: 048
     Dates: start: 20040901, end: 20041101
  9. EFFEXOR XR [Suspect]
     Indication: FACIAL PAIN
     Dosage: SEE IMAGE
     Route: 048
     Dates: start: 20041101, end: 20041201
  10. EFFEXOR XR [Suspect]
     Indication: MENOPAUSE
     Dosage: SEE IMAGE
     Route: 048
     Dates: start: 20041101, end: 20041201
  11. EFFEXOR XR [Suspect]
     Indication: FACIAL PAIN
     Dosage: SEE IMAGE
     Route: 048
     Dates: start: 20041201, end: 20050201
  12. EFFEXOR XR [Suspect]
     Indication: MENOPAUSE
     Dosage: SEE IMAGE
     Route: 048
     Dates: start: 20041201, end: 20050201
  13. EFFEXOR XR [Suspect]
     Indication: FACIAL PAIN
     Dosage: SEE IMAGE
     Route: 048
     Dates: start: 20020701
  14. EFFEXOR XR [Suspect]
     Indication: MENOPAUSE
     Dosage: SEE IMAGE
     Route: 048
     Dates: start: 20020701
  15. REMERON [Concomitant]
  16. PROZAC [Concomitant]
  17. PREMARIN [Concomitant]
  18. PEPCID [Concomitant]
  19. PREVACID [Concomitant]
  20. ELAVIL [Concomitant]
  21. DURAGESIC (FENTANYL) [Concomitant]

REACTIONS (26)
  - ABDOMINAL PAIN [None]
  - ANOREXIA [None]
  - ANXIETY [None]
  - ASTHENIA [None]
  - DRUG WITHDRAWAL SYNDROME [None]
  - DUODENAL PERFORATION [None]
  - FEELING ABNORMAL [None]
  - FEELING JITTERY [None]
  - GALLBLADDER DISORDER [None]
  - GASTRITIS [None]
  - GASTROINTESTINAL DISORDER [None]
  - GASTROINTESTINAL HAEMORRHAGE [None]
  - HAEMATEMESIS [None]
  - HAEMATOCHEZIA [None]
  - HEADACHE [None]
  - HEPATIC CYST [None]
  - HIATUS HERNIA [None]
  - HYPERHIDROSIS [None]
  - LIVER DISORDER [None]
  - NAUSEA [None]
  - PANIC ATTACK [None]
  - PARAESTHESIA [None]
  - SUICIDAL IDEATION [None]
  - TENSION [None]
  - UNEVALUABLE EVENT [None]
  - WEIGHT DECREASED [None]
